FAERS Safety Report 9871517 (Version 4)
Quarter: 2014Q4

REPORT INFORMATION
  Report Type: Spontaneous
  Country: US (occurrence: US)
  Receive Date: 20140205
  Receipt Date: 20141103
  Transmission Date: 20150529
  Serious: Yes (Other)
  Sender: FDA-Public Use
  Company Number: US-009507513-1402USA002087

PATIENT
  Sex: Female
  Weight: 71.66 kg

DRUGS (2)
  1. NUVARING [Suspect]
     Active Substance: ETHINYL ESTRADIOL\ETONOGESTREL
     Indication: MENOMETRORRHAGIA
     Dosage: UNK
     Route: 067
     Dates: start: 20130514
  2. NUVARING [Suspect]
     Active Substance: ETHINYL ESTRADIOL\ETONOGESTREL
     Indication: DYSMENORRHOEA
     Dosage: UNK
     Route: 067

REACTIONS (29)
  - Wheezing [Unknown]
  - Neoplasm malignant [Unknown]
  - Lymphadenopathy [Unknown]
  - Hiatus hernia [Unknown]
  - Headache [Unknown]
  - Contusion [Unknown]
  - Pulmonary infarction [Unknown]
  - Bruxism [Unknown]
  - Hysterectomy [Unknown]
  - Off label use [Unknown]
  - Plantar fasciitis [Unknown]
  - Schizophrenia [Unknown]
  - Neck pain [Unknown]
  - Anxiety [Unknown]
  - Ectopic pregnancy [Unknown]
  - Pulmonary embolism [Unknown]
  - Tooth disorder [Unknown]
  - Depression [Unknown]
  - Maternal exposure before pregnancy [Unknown]
  - Goitre [Unknown]
  - Smear cervix abnormal [Unknown]
  - Bipolar disorder [Unknown]
  - Pain in jaw [Unknown]
  - Anaemia [Not Recovered/Not Resolved]
  - Chest pain [Unknown]
  - Laceration [Unknown]
  - Dental caries [Unknown]
  - Salpingo-oophorectomy [Unknown]
  - Abdominal pain [Unknown]

NARRATIVE: CASE EVENT DATE: 2003
